FAERS Safety Report 16432271 (Version 1)
Quarter: 2019Q2

REPORT INFORMATION
  Report Type: Spontaneous
  Country: US (occurrence: US)
  Receive Date: 20190614
  Receipt Date: 20190614
  Transmission Date: 20190711
  Serious: No
  Sender: FDA-Public Use
  Company Number: US-JNJFOC-20150713211

PATIENT
  Age: 9 Year
  Sex: Male

DRUGS (4)
  1. RISPERDAL [Suspect]
     Active Substance: RISPERIDONE
     Indication: ATTENTION DEFICIT/HYPERACTIVITY DISORDER
     Dosage: O.5 MG AND 1 MG
     Route: 048
     Dates: start: 1996, end: 2000
  2. RISPERDAL [Suspect]
     Active Substance: RISPERIDONE
     Indication: POST-TRAUMATIC STRESS DISORDER
     Dosage: O.5 MG AND 1 MG
     Route: 048
     Dates: start: 1996, end: 2000
  3. RISPERDAL [Suspect]
     Active Substance: RISPERIDONE
     Indication: SUICIDAL IDEATION
     Dosage: O.5 MG AND 1 MG
     Route: 048
     Dates: start: 1996, end: 2000
  4. RISPERDAL [Suspect]
     Active Substance: RISPERIDONE
     Indication: AGGRESSION
     Dosage: O.5 MG AND 1 MG
     Route: 048
     Dates: start: 1996, end: 2000

REACTIONS (4)
  - Abnormal weight gain [Unknown]
  - Hyperprolactinaemia [Unknown]
  - Gynaecomastia [Unknown]
  - Galactorrhoea [Unknown]

NARRATIVE: CASE EVENT DATE: 199806
